FAERS Safety Report 22990076 (Version 2)
Quarter: 2023Q4

REPORT INFORMATION
  Report Type: Spontaneous
  Country: US (occurrence: US)
  Receive Date: 20230927
  Receipt Date: 20231113
  Transmission Date: 20240110
  Serious: No
  Sender: FDA-Public Use
  Company Number: US-SA-SAC20230926000333

PATIENT
  Age: 39 Year
  Sex: Female

DRUGS (1)
  1. DUPIXENT [Suspect]
     Active Substance: DUPILUMAB
     Indication: Dermatitis atopic
     Dosage: 300MG EVERY OTHER WEEK
     Route: 058
     Dates: start: 202306, end: 2023

REACTIONS (2)
  - Dry eye [Unknown]
  - Rash [Unknown]

NARRATIVE: CASE EVENT DATE: 20230101
